FAERS Safety Report 21168389 (Version 1)
Quarter: 2022Q3

REPORT INFORMATION
  Report Type: Spontaneous
  Country: US (occurrence: US)
  Receive Date: 20220803
  Receipt Date: 20220803
  Transmission Date: 20221026
  Serious: No
  Sender: FDA-Public Use
  Company Number: US-TAKEDA-2022TUS052479

PATIENT
  Sex: Male

DRUGS (2)
  1. PREVACID SOLUTAB [Suspect]
     Active Substance: LANSOPRAZOLE
     Indication: Gastric haemorrhage
     Dosage: 30 MILLIGRAM
     Route: 065
  2. PREVACID SOLUTAB [Suspect]
     Active Substance: LANSOPRAZOLE
     Indication: Post procedural complication

REACTIONS (2)
  - Product use in unapproved indication [Unknown]
  - No adverse event [Unknown]
